FAERS Safety Report 6264166-3 (Version None)
Quarter: 2009Q3

REPORT INFORMATION
  Report Type: 
  Country: None (occurrence: None)
  Receive Date: 20090710
  Receipt Date: 20090708
  Transmission Date: 20100115
  Serious: Yes (Other)
  Sender: FDA-Public Use
  Company Number: FR-PFIZER INC-2009236022

PATIENT
  Age: 76 Year

DRUGS (1)
  1. TAHOR [Suspect]
     Dosage: UNK

REACTIONS (2)
  - OPTIC NEUROPATHY [None]
  - VISUAL ACUITY REDUCED [None]
